FAERS Safety Report 8409283-4 (Version None)
Quarter: 2012Q2

REPORT INFORMATION
  Report Type: 
  Country: None (occurrence: None)
  Receive Date: 20120605
  Receipt Date: 20120530
  Transmission Date: 20120825
  Serious: Yes (Hospitalization)
  Sender: FDA-Public Use
  Company Number: US-AMGEN-USASP2012031556

PATIENT
  Age: 51 Year
  Sex: Female

DRUGS (1)
  1. ENBREL [Suspect]
     Indication: PSORIASIS
     Dosage: 50 MG, 2 TIMES/WK
     Dates: start: 20100420

REACTIONS (6)
  - OBESITY [None]
  - DRY SKIN [None]
  - INJECTION SITE PAIN [None]
  - VOMITING [None]
  - PSORIASIS [None]
  - DEHYDRATION [None]
